FAERS Safety Report 13463287 (Version 1)
Quarter: 2017Q2

REPORT INFORMATION
  Report Type: Other
  Country: CA (occurrence: CA)
  Receive Date: 20170420
  Receipt Date: 20170420
  Transmission Date: 20170830
  Serious: Yes (Hospitalization)
  Sender: FDA-Public Use
  Company Number: CA-GEHC-2017CSU000850

PATIENT

DRUGS (1)
  1. OMNIPAQUE [Suspect]
     Active Substance: IOHEXOL
     Indication: PRODUCT USED FOR UNKNOWN INDICATION
     Dosage: UNK UNK, SINGLE
     Route: 042

REACTIONS (3)
  - Dyspnoea [Not Recovered/Not Resolved]
  - Generalised erythema [Not Recovered/Not Resolved]
  - Urticaria [Not Recovered/Not Resolved]
